FAERS Safety Report 19316813 (Version 6)
Quarter: 2023Q2

REPORT INFORMATION
  Report Type: Report from Study
  Country: AT (occurrence: AT)
  Receive Date: 20210527
  Receipt Date: 20230519
  Transmission Date: 20230721
  Serious: Yes (Hospitalization)
  Sender: FDA-Public Use
  Company Number: AT-TAKEDA-2021TUS032648

PATIENT
  Age: 69 Year
  Sex: Female

DRUGS (6)
  1. VEDOLIZUMAB [Suspect]
     Active Substance: VEDOLIZUMAB
     Indication: Crohn^s disease
     Dosage: 300 MILLIGRAM
     Route: 042
     Dates: start: 20210331
  2. VEDOLIZUMAB [Suspect]
     Active Substance: VEDOLIZUMAB
     Indication: Crohn^s disease
     Dosage: 108 MILLIGRAM, Q2WEEKS
     Route: 058
     Dates: start: 20210527
  3. ISONIAZID [Suspect]
     Active Substance: ISONIAZID
     Indication: Antibiotic prophylaxis
     Dosage: 100 MILLIGRAM
     Route: 065
  4. CANDAM [Concomitant]
     Dosage: UNK, QD
     Route: 048
  5. FOLIC ACID [Concomitant]
     Active Substance: FOLIC ACID
     Dosage: 0.4 MILLIGRAM
     Route: 048
  6. GINKGO [Concomitant]
     Active Substance: GINKGO
     Dosage: 40 MILLIGRAM, QD
     Route: 048

REACTIONS (6)
  - Diarrhoea [Recovering/Resolving]
  - Abdominal distension [Recovering/Resolving]
  - Asthenia [Unknown]
  - Defaecation urgency [Unknown]
  - Abdominal pain [Unknown]
  - Pruritus [Not Recovered/Not Resolved]
